FAERS Safety Report 17438002 (Version 1)
Quarter: 2020Q1

REPORT INFORMATION
  Report Type: Spontaneous
  Country: FI (occurrence: FI)
  Receive Date: 20200220
  Receipt Date: 20200220
  Transmission Date: 20200409
  Serious: Yes (Hospitalization)
  Sender: FDA-Public Use
  Company Number: FI-TEVA-2020-FI-1188381

PATIENT
  Sex: Male

DRUGS (5)
  1. DEPRAKINE [Concomitant]
     Active Substance: VALPROIC ACID
     Dosage: 1200,MG,DAILY
  2. AKINETON [Concomitant]
     Active Substance: BIPERIDEN HYDROCHLORIDE
     Dosage: 2,MG,X2
  3. RISPERDAL [Suspect]
     Active Substance: RISPERIDONE
     Dosage: 4,MG,DAILY
     Route: 048
  4. XEPLION [Concomitant]
     Active Substance: PALIPERIDONE PALMITATE
     Indication: MANIA
     Dosage: PROLONGED-RELEASE SUSPENSION FOR INJECTION
     Route: 030
  5. RISPERIDONE. [Suspect]
     Active Substance: RISPERIDONE
     Dosage: 4,MG,DAILY
     Route: 048

REACTIONS (4)
  - Akathisia [Unknown]
  - Insomnia [Unknown]
  - Anxiety [Unknown]
  - Bradyphrenia [Unknown]
